FAERS Safety Report 8514670 (Version 3)
Quarter: 2014Q2

REPORT INFORMATION
  Report Type: Spontaneous
  Country: US (occurrence: US)
  Receive Date: 20120416
  Receipt Date: 20140410
  Transmission Date: 20141212
  Serious: Yes (Death, Hospitalization)
  Sender: FDA-Public Use
  Company Number: US-B.I. PHARMACEUTICALS,INC./RIDGEFIELD-2012-BP-07036BP

PATIENT
  Age: 74 Year
  Sex: Male
  Weight: 83.01 kg

DRUGS (20)
  1. PRADAXA [Suspect]
     Indication: ATRIAL FIBRILLATION
     Dosage: 300 MG
     Route: 065
     Dates: start: 20070720
  2. IMDUR [Concomitant]
     Dosage: 60 MG
     Route: 065
  3. COREG [Concomitant]
     Dosage: 50 MG
     Route: 048
     Dates: start: 20120119
  4. ZOCOR [Concomitant]
     Dosage: 40 MG
     Route: 048
  5. LASIX [Concomitant]
     Dosage: 160 MG
     Route: 048
  6. KLOR-CON [Concomitant]
     Route: 065
  7. FOLIC ACID [Concomitant]
     Dosage: 1 MG
     Route: 048
  8. NIACIN [Concomitant]
     Dosage: 2500 MG
     Route: 048
     Dates: start: 20120327
  9. ALLOPURINOL [Concomitant]
     Dosage: 300 MG
     Route: 048
  10. VITAMIN C [Concomitant]
     Dosage: 500 MG
     Route: 065
  11. VITAMIN E [Concomitant]
     Dosage: 400 U
     Route: 065
  12. VITAMIN B-6 [Concomitant]
     Dosage: 50 MG
     Route: 065
  13. NITROQUICK [Concomitant]
     Indication: CHEST PAIN
     Route: 060
  14. PEPCID AC [Concomitant]
     Route: 065
     Dates: start: 20111208
  15. K-DUR [Concomitant]
     Dosage: 60 MG
     Route: 048
  16. FENTANYL [Concomitant]
     Route: 065
  17. MIDAZOLAM [Concomitant]
     Route: 065
  18. ONDANSETRON [Concomitant]
     Route: 065
  19. PANTOPRAZOLE [Concomitant]
     Route: 065
  20. DESMOPRESSIN [Concomitant]
     Route: 065

REACTIONS (6)
  - Cerebellar haemorrhage [Fatal]
  - Subarachnoid haemorrhage [Fatal]
  - Upper gastrointestinal haemorrhage [Unknown]
  - Renal failure acute [Unknown]
  - Epigastric discomfort [Unknown]
  - Haemorrhage [Unknown]
